FAERS Safety Report 12742599 (Version 3)
Quarter: 2016Q3

REPORT INFORMATION
  Report Type: Report from Study
  Country: IT (occurrence: IT)
  Receive Date: 20160914
  Receipt Date: 20160919
  Transmission Date: 20161109
  Serious: Yes (Other)
  Sender: FDA-Public Use
  Company Number: IT-JNJFOC-20160909656

PATIENT
  Age: 38 Year
  Sex: Male

DRUGS (2)
  1. TOPSTER [Concomitant]
     Route: 065
  2. SIMPONI [Suspect]
     Active Substance: GOLIMUMAB
     Indication: COLITIS ULCERATIVE
     Route: 058
     Dates: start: 201507

REACTIONS (6)
  - Drug effect decreased [Not Recovered/Not Resolved]
  - Incorrect dose administered [Unknown]
  - Haematochezia [Not Recovered/Not Resolved]
  - Off label use [Unknown]
  - Rash [Recovered/Resolved with Sequelae]
  - Papule [Recovered/Resolved with Sequelae]

NARRATIVE: CASE EVENT DATE: 201507
